FAERS Safety Report 15763659 (Version 3)
Quarter: 2020Q2

REPORT INFORMATION
  Report Type: Spontaneous
  Country: CA (occurrence: CA)
  Receive Date: 20181227
  Receipt Date: 20200429
  Transmission Date: 20200713
  Serious: Yes (Death, Life-Threatening, Hospitalization, Other)
  Sender: FDA-Public Use
  Company Number: CA-BRISTOL-MYERS SQUIBB COMPANY-BMS-2018-121294

PATIENT
  Age: 59 Year
  Sex: Female

DRUGS (1)
  1. ELIQUIS [Suspect]
     Active Substance: APIXABAN
     Indication: CEREBROVASCULAR ACCIDENT PROPHYLAXIS
     Dosage: 5 MG, BID
     Route: 065
     Dates: end: 201812

REACTIONS (4)
  - Septic shock [Unknown]
  - Intestinal ischaemia [Unknown]
  - Intentional product use issue [Unknown]
  - Respiratory failure [Fatal]

NARRATIVE: CASE EVENT DATE: 201812
